FAERS Safety Report 6252134-7 (Version None)
Quarter: 2009Q2

REPORT INFORMATION
  Report Type: 
  Country: None (occurrence: None)
  Receive Date: 20090630
  Receipt Date: 20090626
  Transmission Date: 20091009
  Serious: Yes (Hospitalization)
  Sender: FDA-Public Use
  Company Number: US-GILEAD-2009-0021895

PATIENT
  Sex: Male
  Weight: 99.88 kg

DRUGS (6)
  1. LETAIRIS [Suspect]
     Indication: PULMONARY ARTERIAL HYPERTENSION
     Route: 048
     Dates: start: 20090501
  2. FUROSEMIDE INTENSOL [Concomitant]
  3. AMLODIPINE [Concomitant]
  4. LISINOPRIL [Concomitant]
  5. WARFARIN SODIUM [Concomitant]
  6. GLIPIZIDE [Concomitant]

REACTIONS (6)
  - DYSPNOEA [None]
  - DYSURIA [None]
  - HYPERSENSITIVITY [None]
  - HYPOXIA [None]
  - LIP SWELLING [None]
  - OEDEMA PERIPHERAL [None]
